FAERS Safety Report 17634945 (Version 1)
Quarter: 2020Q2

REPORT INFORMATION
  Report Type: Report from Study
  Country: US (occurrence: US)
  Receive Date: 20200406
  Receipt Date: 20200406
  Transmission Date: 20200713
  Serious: Yes (Hospitalization, Other)
  Sender: FDA-Public Use
  Company Number: US-GILEAD-2020-0457942

PATIENT
  Age: 27 Year
  Sex: Female

DRUGS (1)
  1. AZTREONAM LYSINE [Suspect]
     Active Substance: AZTREONAM LYSINE
     Indication: CYSTIC FIBROSIS
     Dosage: UNK, TID CONTINUOUSLY DURING PREGNANCY
     Route: 065
     Dates: start: 20191023

REACTIONS (3)
  - Cystic fibrosis respiratory infection suppression [Unknown]
  - Maternal exposure during pregnancy [Not Recovered/Not Resolved]
  - Cystic fibrosis [Unknown]
